FAERS Safety Report 22187182 (Version 1)
Quarter: 2023Q2

REPORT INFORMATION
  Report Type: Spontaneous
  Country: CN (occurrence: CN)
  Receive Date: 20230407
  Receipt Date: 20230407
  Transmission Date: 20230722
  Serious: Yes (Hospitalization, Other)
  Sender: FDA-Public Use
  Company Number: CN-PFIZER INC-PV202300063504

PATIENT
  Age: 30 Year
  Sex: Female
  Weight: 47 kg

DRUGS (2)
  1. METHOTREXATE SODIUM [Suspect]
     Active Substance: METHOTREXATE SODIUM
     Indication: Ectopic pregnancy
     Dosage: 50 MG, ALTERNATE DAY
     Route: 030
     Dates: start: 20230322, end: 20230324
  2. SODIUM CHLORIDE [Concomitant]
     Active Substance: SODIUM CHLORIDE
     Indication: Vehicle solution use
     Dosage: 10 ML, ALTERNATE DAY
     Route: 030
     Dates: start: 20230322, end: 20230324

REACTIONS (3)
  - Liver injury [Recovering/Resolving]
  - Mouth ulceration [Recovering/Resolving]
  - Lip ulceration [Recovering/Resolving]

NARRATIVE: CASE EVENT DATE: 20230326
